FAERS Safety Report 6956838-X (Version None)
Quarter: 2010Q3

REPORT INFORMATION
  Report Type: 
  Country: None (occurrence: None)
  Receive Date: 20100826
  Receipt Date: 20100813
  Transmission Date: 20110219
  Serious: Yes (Disabling)
  Sender: FDA-Public Use
  Company Number: TPG2010A00296

PATIENT
  Age: 65 Year
  Sex: Male

DRUGS (2)
  1. LANSOPRAZOLE [Suspect]
     Indication: PRODUCT USED FOR UNKNOWN INDICATION
     Dosage: 15 MG (15 MG, 1-0-0) PER ORAL
     Route: 048
  2. VITALUX PLUS (PROGESTERONE, IRON OXIDES, LECITHIN, GELATIN, MONOGLYCER [Concomitant]

REACTIONS (1)
  - MACULAR DEGENERATION [None]
